FAERS Safety Report 8456303-7 (Version None)
Quarter: 2012Q2

REPORT INFORMATION
  Report Type: 
  Country: None (occurrence: None)
  Receive Date: 20120621
  Receipt Date: 20120614
  Transmission Date: 20120825
  Serious: Yes (Death, Hospitalization)
  Sender: FDA-Public Use
  Company Number: FR-ROCHE-1079544

PATIENT
  Age: 83 Year
  Sex: Female

DRUGS (13)
  1. RANIBIZUMAB [Suspect]
     Dosage: 0.05 ML, IN RIGHT EYE
     Route: 050
     Dates: start: 20080924
  2. RANIBIZUMAB [Suspect]
     Dosage: 0.05 ML, IN LEFT EYE
     Route: 050
     Dates: start: 20100826
  3. RANIBIZUMAB [Suspect]
     Dosage: 0.05 ML, IN RIGHT EYE
     Route: 050
     Dates: start: 20110511
  4. RANIBIZUMAB [Suspect]
     Dosage: 0.05 ML, IN RIGHT EYE
     Route: 050
     Dates: start: 20111109
  5. RANIBIZUMAB [Suspect]
     Dosage: 0.05 ML, IN LEFT EYE
     Route: 050
     Dates: start: 20100217
  6. RANIBIZUMAB [Suspect]
     Dosage: 0.05 ML, IN RIGHT EYE
     Route: 050
     Dates: start: 20110120
  7. RANIBIZUMAB [Suspect]
     Dosage: 0.05 ML, IN RIGHT EYE
     Route: 050
     Dates: start: 20090930
  8. RANIBIZUMAB [Suspect]
     Dosage: 0.05 ML, IN LEFT EYE
     Route: 050
     Dates: start: 20090304
  9. RANIBIZUMAB [Suspect]
     Dosage: 0.05 ML, IN LEFT EYE
     Route: 050
     Dates: start: 20090826
  10. RANIBIZUMAB [Suspect]
     Dosage: 0.05 ML, IN RIGHT EYE
     Route: 050
     Dates: start: 20090617
  11. RANIBIZUMAB [Suspect]
     Dosage: 0.05 ML, IN RIGHT EYE
     Route: 050
     Dates: start: 20100210
  12. RANIBIZUMAB [Suspect]
     Indication: AGE-RELATED MACULAR DEGENERATION
     Dosage: 0.05 ML, IN LEFT  EYE
     Route: 050
     Dates: start: 20070912
  13. RANIBIZUMAB [Suspect]
     Dosage: 0.05 ML, IN RIGHT EYE
     Route: 050
     Dates: start: 20090211

REACTIONS (2)
  - INAPPROPRIATE SCHEDULE OF DRUG ADMINISTRATION [None]
  - PANCREATIC CARCINOMA [None]
